FAERS Safety Report 5847092-0 (Version None)
Quarter: 2008Q3

REPORT INFORMATION
  Report Type: 
  Country: None (occurrence: None)
  Receive Date: 20080815
  Receipt Date: 20080805
  Transmission Date: 20090109
  Serious: Yes (Other)
  Sender: FDA-Public Use
  Company Number: US-PFIZER INC-2008066370

PATIENT
  Sex: Female
  Weight: 106.6 kg

DRUGS (18)
  1. CHANTIX [Suspect]
     Indication: SMOKING CESSATION THERAPY
  2. INSULIN [Concomitant]
  3. ACTOS [Concomitant]
  4. HYDRALAZINE HCL [Concomitant]
  5. PLENDIL [Concomitant]
  6. FUROSEMIDE [Concomitant]
  7. ALLOPURINOL [Concomitant]
  8. GABAPENTIN [Concomitant]
  9. PRAVASTATIN [Concomitant]
  10. ISRADIPINE [Concomitant]
  11. ACETYLSALICYLIC ACID SRT [Concomitant]
  12. ALBUTEROL [Concomitant]
  13. ADVAIR DISKUS 100/50 [Concomitant]
  14. NASONEX [Concomitant]
  15. ALPRAZOLAM [Concomitant]
  16. PRILOSEC [Concomitant]
  17. PATANOL [Concomitant]
  18. CLARITIN [Concomitant]

REACTIONS (2)
  - PARANOIA [None]
  - POLYPECTOMY [None]
